FAERS Safety Report 17159120 (Version 1)
Quarter: 2019Q4

REPORT INFORMATION
  Report Type: Report from Study
  Country: IN (occurrence: IN)
  Receive Date: 20191216
  Receipt Date: 20191216
  Transmission Date: 20200122
  Serious: Yes (Death)
  Sender: FDA-Public Use
  Company Number: IN-ASTRAZENECA-2019SF80994

PATIENT
  Age: 70 Year
  Sex: Male

DRUGS (10)
  1. CIPLOX [Concomitant]
     Active Substance: CIPROFLOXACIN
     Indication: CARDIAC DISORDER
     Route: 048
     Dates: start: 20190813, end: 20190814
  2. ALDACTONE [Concomitant]
     Active Substance: SPIRONOLACTONE
     Indication: CARDIAC DISORDER
     Route: 048
     Dates: start: 20190813, end: 20190814
  3. ISORDIL [Concomitant]
     Active Substance: ISOSORBIDE DINITRATE
     Indication: CARDIAC DISORDER
     Dosage: AS REQUIRED
     Route: 048
     Dates: start: 20190813, end: 20190814
  4. BRILINTA [Suspect]
     Active Substance: TICAGRELOR
     Indication: CARDIAC DISORDER
     Route: 048
     Dates: start: 20190813, end: 20190814
  5. ATORVA [Concomitant]
     Indication: CARDIAC DISORDER
     Route: 048
     Dates: start: 20190813, end: 20190814
  6. DYTOR [Concomitant]
     Active Substance: TORSEMIDE
     Indication: CARDIAC DISORDER
     Route: 048
     Dates: start: 20190813, end: 20190814
  7. AMARYL [Concomitant]
     Active Substance: GLIMEPIRIDE
     Indication: CARDIAC DISORDER
     Route: 048
     Dates: start: 20190813, end: 20190814
  8. ORCIBEST [Concomitant]
     Indication: CARDIAC DISORDER
     Dates: start: 20190813, end: 20190814
  9. ASPIRIN. [Concomitant]
     Active Substance: ASPIRIN
     Indication: CARDIAC DISORDER
     Route: 048
     Dates: start: 20190813, end: 20190814
  10. ANCIDOM-DSR [Concomitant]
     Indication: CARDIAC DISORDER
     Route: 048
     Dates: start: 20190813, end: 20190814

REACTIONS (1)
  - Death [Fatal]

NARRATIVE: CASE EVENT DATE: 20190814
